FAERS Safety Report 15657427 (Version 1)
Quarter: 2018Q4

REPORT INFORMATION
  Report Type: Report from Study
  Country: US (occurrence: US)
  Receive Date: 20181126
  Receipt Date: 20181126
  Transmission Date: 20190205
  Serious: Yes (Hospitalization, Other)
  Sender: FDA-Public Use
  Company Number: US-JNJFOC-20181009415

PATIENT
  Age: 57 Year
  Sex: Male

DRUGS (27)
  1. FLUCONAZOLE. [Concomitant]
     Active Substance: FLUCONAZOLE
  2. TRAZODONE [Concomitant]
     Active Substance: TRAZODONE HYDROCHLORIDE
  3. VITAMIN D3 [Concomitant]
     Active Substance: CHOLECALCIFEROL
  4. TESTOSTERONE. [Concomitant]
     Active Substance: TESTOSTERONE
  5. FOLIC ACID. [Concomitant]
     Active Substance: FOLIC ACID
  6. LEVETIRACETAM. [Concomitant]
     Active Substance: LEVETIRACETAM
  7. NYSTATIN. [Concomitant]
     Active Substance: NYSTATIN
  8. ONDANSETRON [Concomitant]
     Active Substance: ONDANSETRON
  9. KEPPRA [Concomitant]
     Active Substance: LEVETIRACETAM
  10. ZOLOFT [Concomitant]
     Active Substance: SERTRALINE HYDROCHLORIDE
  11. BUDESONIDE. [Concomitant]
     Active Substance: BUDESONIDE
  12. LISINOPRIL AND HYDROCHLOROTHIAZIDE [Concomitant]
     Active Substance: HYDROCHLOROTHIAZIDE\LISINOPRIL
  13. POLYETHYLENE GLYCOL [Concomitant]
     Active Substance: POLYETHYLENE GLYCOLS
  14. MAGNESIUM [Concomitant]
     Active Substance: MAGNESIUM
  15. ATARAX [Concomitant]
     Active Substance: HYDROXYZINE HYDROCHLORIDE
  16. PRILOSEC [Concomitant]
     Active Substance: OMEPRAZOLE MAGNESIUM
  17. LOPRESSOR [Concomitant]
     Active Substance: METOPROLOL TARTRATE
  18. IMBRUVICA [Suspect]
     Active Substance: IBRUTINIB
     Indication: CHRONIC LYMPHOCYTIC LEUKAEMIA
     Dosage: 280 MG, QD
     Route: 048
     Dates: start: 20180821, end: 20180909
  19. NORCO [Concomitant]
     Active Substance: ACETAMINOPHEN\HYDROCODONE BITARTRATE
  20. MULTIVITAMINS [Concomitant]
     Active Substance: VITAMINS
  21. OXYCODONE [Concomitant]
     Active Substance: OXYCODONE
  22. ACYCLOVIR. [Concomitant]
     Active Substance: ACYCLOVIR
  23. DOCUSATE SODIUM. [Concomitant]
     Active Substance: DOCUSATE SODIUM
  24. SINGULAIR [Concomitant]
     Active Substance: MONTELUKAST SODIUM
  25. CANDESARTAN. [Concomitant]
     Active Substance: CANDESARTAN
  26. LOPERAMIDE [Concomitant]
     Active Substance: LOPERAMIDE
  27. PREDNISONE. [Concomitant]
     Active Substance: PREDNISONE

REACTIONS (10)
  - Deep vein thrombosis [Recovering/Resolving]
  - Purpura [Recovering/Resolving]
  - Adverse event [Not Recovered/Not Resolved]
  - Hyperkalaemia [Recovering/Resolving]
  - Graft versus host disease [Unknown]
  - Dehydration [Recovering/Resolving]
  - Incorrect dose administered [Unknown]
  - Off label use [Unknown]
  - Myopathy [Unknown]
  - Drug ineffective [Unknown]

NARRATIVE: CASE EVENT DATE: 20180821
